FAERS Safety Report 6983887-8 (Version None)
Quarter: 2010Q3

REPORT INFORMATION
  Report Type: 
  Country: None (occurrence: None)
  Receive Date: 20100914
  Receipt Date: 20090415
  Transmission Date: 20110219
  Serious: No
  Sender: FDA-Public Use
  Company Number: US-WYE-H08973109

PATIENT
  Age: 76 Year
  Sex: Female
  Weight: 64.47 kg

DRUGS (1)
  1. ADVIL LIQUI-GELS [Suspect]
     Indication: PAIN IN EXTREMITY
     Route: 048
     Dates: start: 20090301

REACTIONS (1)
  - LETHARGY [None]
